FAERS Safety Report 9071831 (Version 2)
Quarter: 2014Q2

REPORT INFORMATION
  Report Type: Report from Study
  Country: GB (occurrence: GB)
  Receive Date: 20130129
  Receipt Date: 20140405
  Transmission Date: 20141212
  Serious: Yes (Hospitalization)
  Sender: FDA-Public Use
  Company Number: GB-ROCHE-1184871

PATIENT
  Age: 85 Year
  Sex: Female
  Weight: 56 kg

DRUGS (5)
  1. RANIBIZUMAB [Suspect]
     Indication: AGE-RELATED MACULAR DEGENERATION
     Dosage: 0.05ML/0.5G DATE OF LAST DOSE PRIOR TO SAE: 11/SEP/2012
     Route: 050
     Dates: start: 20080514, end: 20130717
  2. OMEPRAZOLE [Concomitant]
     Route: 065
     Dates: start: 20020822
  3. BETAHISTINE [Concomitant]
     Route: 065
     Dates: start: 19990512
  4. LEVOTHYROXINE [Concomitant]
     Route: 065
     Dates: start: 19980216
  5. AMLODIPINE [Concomitant]
     Route: 065
     Dates: start: 20100528

REACTIONS (5)
  - Transient ischaemic attack [Recovered/Resolved]
  - Fall [Unknown]
  - Subdural haemorrhage [Recovered/Resolved]
  - Subarachnoid haemorrhage [Recovered/Resolved]
  - Facial bones fracture [Recovered/Resolved]
